APPROVED DRUG PRODUCT: FOCALIN XR
Active Ingredient: DEXMETHYLPHENIDATE HYDROCHLORIDE
Strength: 40MG
Dosage Form/Route: CAPSULE, EXTENDED RELEASE;ORAL
Application: N021802 | Product #006 | TE Code: AB
Applicant: SANDOZ INC
Approved: Aug 11, 2010 | RLD: Yes | RS: Yes | Type: RX